FAERS Safety Report 7733419-1 (Version None)
Quarter: 2011Q3

REPORT INFORMATION
  Report Type: 
  Country: None (occurrence: None)
  Receive Date: 20110907
  Receipt Date: 20110830
  Transmission Date: 20111222
  Serious: Yes (Hospitalization)
  Sender: FDA-Public Use
  Company Number: CA-AMGEN-CANSP2011027860

PATIENT
  Age: 79 Year
  Sex: Female
  Weight: 88 kg

DRUGS (16)
  1. LANTUS [Concomitant]
     Dosage: 22 UNIT, UNK
  2. VIT D [Concomitant]
     Dosage: 1000 UNIT, QD
     Route: 048
  3. ELAVIL [Concomitant]
     Dosage: 10 MG, QD
     Route: 048
  4. ALLOPURINOL [Concomitant]
     Indication: GOUT
     Dosage: 100 MG, QD
     Route: 048
     Dates: start: 20110520
  5. FUROSEMID                          /00032601/ [Concomitant]
     Indication: RENAL FAILURE CHRONIC
     Dosage: 40 MG, QD
     Route: 048
  6. PREDNISONE [Concomitant]
     Indication: RHEUMATOID ARTHRITIS
     Dosage: 5 MG, QD
     Route: 048
  7. TYLENOL W/ CODEINE NO. 2 [Concomitant]
     Indication: PAIN
     Dosage: UNK UNK, BID
     Route: 048
  8. ENBREL [Suspect]
     Indication: RHEUMATOID ARTHRITIS
     Dosage: 50 MG, QWK
     Route: 058
     Dates: start: 20090725, end: 20110201
  9. METOPROLOL [Concomitant]
     Indication: HYPERTENSION
     Dosage: 50 MG, BID
  10. EZETIMIBE [Concomitant]
     Indication: HYPERCHOLESTEROLAEMIA
     Dosage: 10 MG, QD
     Route: 048
  11. ASPIRIN [Concomitant]
     Dosage: 325 MG, QD
     Route: 048
  12. PAXIL [Concomitant]
     Dosage: 20 MG, QD
     Route: 048
  13. RANITIDINE HCL [Concomitant]
     Dosage: 150 MG, BID
     Route: 048
  14. TERAZOSIN HCL [Concomitant]
     Dosage: 5 MG, QD
     Route: 048
  15. ATORVASTATIN [Concomitant]
     Indication: HYPERCHOLESTEROLAEMIA
     Dosage: 40 MG, QD
     Route: 048
  16. HUMALOG [Concomitant]
     Indication: DIABETES MELLITUS
     Dosage: 17 UNIT, QD
     Route: 058

REACTIONS (3)
  - GOUT [None]
  - TONGUE NEOPLASM MALIGNANT STAGE UNSPECIFIED [None]
  - RHEUMATOID ARTHRITIS [None]
